FAERS Safety Report 13238432 (Version 2)
Quarter: 2017Q1

REPORT INFORMATION
  Report Type: Report from Study
  Country: CA (occurrence: CA)
  Receive Date: 20170216
  Receipt Date: 20170327
  Transmission Date: 20170428
  Serious: Yes (Hospitalization, Other)
  Sender: FDA-Public Use
  Company Number: CA-ROCHE-1877056

PATIENT
  Age: 61 Year
  Sex: Female

DRUGS (7)
  1. METHOTREXATE. [Concomitant]
     Active Substance: METHOTREXATE
  2. ACTEMRA [Suspect]
     Active Substance: TOCILIZUMAB
     Indication: RHEUMATOID ARTHRITIS
     Dosage: ON HOLD
     Route: 058
     Dates: start: 20161207
  3. ACETYLSALICYLIC ACID [Concomitant]
     Active Substance: ASPIRIN
  4. TOLOXIN (CANADA) [Concomitant]
  5. APO-RISEDRONATE [Concomitant]
     Active Substance: RISEDRONATE SODIUM
  6. FEMARA [Concomitant]
     Active Substance: LETROZOLE
  7. METFORMIN [Concomitant]
     Active Substance: METFORMIN HYDROCHLORIDE

REACTIONS (5)
  - Cardiac disorder [Not Recovered/Not Resolved]
  - Hypotension [Not Recovered/Not Resolved]
  - Tachycardia [Not Recovered/Not Resolved]
  - Acute pulmonary oedema [Not Recovered/Not Resolved]
  - Mastitis [Unknown]

NARRATIVE: CASE EVENT DATE: 20170105
